FAERS Safety Report 8782844 (Version 1)
Quarter: 2012Q4

REPORT INFORMATION
  Report Type: 
  Country: FR (occurrence: FR)
  Receive Date: 20120913
  Receipt Date: 20120913
  Transmission Date: 20130627
  Serious: Yes (Life-Threatening, Hospitalization)
  Sender: FDA-Public Use
  Company Number: FR-GLAXOSMITHKLINE-B0828370A

PATIENT
  Age: 56 Year
  Sex: Female

DRUGS (5)
  1. TRACRIUM [Suspect]
     Indication: ANAESTHESIA
     Dosage: 25MG per day
     Route: 042
     Dates: start: 20120223, end: 20120223
  2. ULTIVA [Suspect]
     Indication: ANAESTHESIA
     Route: 042
     Dates: start: 20120223, end: 20120223
  3. PROPOFOL [Suspect]
     Indication: ANAESTHESIA
     Route: 042
     Dates: start: 20120223, end: 20120223
  4. CEFUROXIME [Suspect]
     Indication: ANTIBIOTIC PROPHYLAXIS
     Dosage: 1.5G per day
     Route: 042
     Dates: start: 20120223, end: 20120223
  5. XANAX [Suspect]
     Indication: PREMEDICATION
     Dosage: .25MG per day
     Route: 048
     Dates: start: 20120223, end: 20120223

REACTIONS (5)
  - Anaphylactic reaction [Recovered/Resolved]
  - Generalised erythema [Recovered/Resolved]
  - Hypotension [Recovered/Resolved]
  - Tachycardia [Recovered/Resolved]
  - Cough [Recovered/Resolved]
